FAERS Safety Report 8512562-3 (Version None)
Quarter: 2012Q3

REPORT INFORMATION
  Report Type: 
  Country: None (occurrence: None)
  Receive Date: 20120716
  Receipt Date: 20120702
  Transmission Date: 20120928
  Serious: Yes (Death, Hospitalization)
  Sender: FDA-Public Use
  Company Number: US-MYLANLABS-2012S1013687

PATIENT
  Age: 3 Decade
  Sex: Female

DRUGS (2)
  1. TACROLIMUS [Concomitant]
     Indication: IMMUNOSUPPRESSANT DRUG THERAPY
     Route: 065
  2. AZATHIOPRINE [Suspect]
     Indication: IMMUNOSUPPRESSANT DRUG THERAPY
     Route: 065

REACTIONS (5)
  - CHOLESTASIS [None]
  - TRANSPLANT REJECTION [None]
  - LIVER TRANSPLANT REJECTION [None]
  - MATERNAL EXPOSURE DURING PREGNANCY [None]
  - CHRONIC HEPATITIS [None]
